FAERS Safety Report 11213135 (Version 1)
Quarter: 2015Q2

REPORT INFORMATION
  Report Type: Spontaneous
  Country: FR (occurrence: FR)
  Receive Date: 20150623
  Receipt Date: 20150623
  Transmission Date: 20150821
  Serious: Yes (Disabling, Other)
  Sender: FDA-Public Use
  Company Number: PHHY2015FR074478

PATIENT
  Age: 54 Year
  Sex: Male

DRUGS (1)
  1. CIPROFLOXACIN. [Suspect]
     Active Substance: CIPROFLOXACIN
     Indication: BK VIRUS INFECTION
     Dosage: 250 MG, BID FOR 3 MONTHS
     Route: 065

REACTIONS (2)
  - Off label use [Unknown]
  - Tendon rupture [Unknown]
